FAERS Safety Report 9518466 (Version 1)
Quarter: 2013Q3

REPORT INFORMATION
  Report Type: Spontaneous
  Country: US (occurrence: US)
  Receive Date: 20130912
  Receipt Date: 20130912
  Transmission Date: 20140515
  Serious: Yes (Hospitalization, Other)
  Sender: FDA-Public Use
  Company Number: US-ABBOTT-13P-163-1145939-00

PATIENT
  Age: 54 Year
  Sex: Male
  Weight: 88.98 kg

DRUGS (7)
  1. CREON [Suspect]
     Indication: PANCREATIC CARCINOMA
     Dosage: 2-3 CAPS WITH MEALS AND ONE WITH SNACKS
     Dates: end: 201308
  2. CREON [Suspect]
     Indication: PANCREATIC CARCINOMA
     Dosage: 3 CAPSULES WITH MEALS AND ONE WITH SNACKS
     Dates: start: 201308
  3. PRILOSEC [Concomitant]
     Indication: PRODUCT USED FOR UNKNOWN INDICATION
  4. LANTUS [Concomitant]
     Indication: DIABETES MELLITUS
  5. AMARYL [Concomitant]
     Indication: DIABETES MELLITUS
  6. REGLAN [Concomitant]
     Indication: IMPAIRED GASTRIC EMPTYING
  7. VITAMINS [Concomitant]
     Indication: NUTRITIONAL SUPPLEMENTATION

REACTIONS (5)
  - Rectal prolapse [Not Recovered/Not Resolved]
  - Electrolyte imbalance [Recovered/Resolved]
  - Diarrhoea [Recovered/Resolved]
  - Flatulence [Recovering/Resolving]
  - Steatorrhoea [Recovering/Resolving]
